FAERS Safety Report 25623586 (Version 3)
Quarter: 2025Q3

REPORT INFORMATION
  Report Type: Report from Study
  Country: GB (occurrence: GB)
  Receive Date: 20250730
  Receipt Date: 20250904
  Transmission Date: 20251021
  Serious: Yes (Hospitalization, Other)
  Sender: UCB
  Company Number: GB-UCBSA-2025045450

PATIENT
  Age: 39 Year
  Sex: Female
  Weight: 71.8 kg

DRUGS (9)
  1. CERTOLIZUMAB PEGOL [Suspect]
     Active Substance: CERTOLIZUMAB PEGOL
     Indication: Psoriasis
     Dosage: 400 MILLIGRAM, EV 2 WEEKS(QOW)
     Dates: start: 20241216
  2. COCODAMOL [Concomitant]
     Active Substance: ACETAMINOPHEN\CODEINE PHOSPHATE
     Indication: Product used for unknown indication
     Dates: start: 20250602
  3. VENTOLIN [Concomitant]
     Active Substance: ALBUTEROL SULFATE
     Indication: Product used for unknown indication
     Dates: start: 20151001
  4. QVAR [Concomitant]
     Active Substance: BECLOMETHASONE DIPROPIONATE
     Indication: Product used for unknown indication
     Dates: start: 20151201
  5. QVAR [Concomitant]
     Active Substance: BECLOMETHASONE DIPROPIONATE
     Dates: start: 20190301
  6. ALBUTEROL [Concomitant]
     Active Substance: ALBUTEROL
     Indication: Product used for unknown indication
     Dates: start: 20190301
  7. CHLORTETRACYCLINE\CLOBETASONE\NYSTATIN [Concomitant]
     Active Substance: CHLORTETRACYCLINE\CLOBETASONE\NYSTATIN
     Indication: Product used for unknown indication
     Dates: start: 20220215
  8. CYCLOSPORINE [Concomitant]
     Active Substance: CYCLOSPORINE
     Indication: Product used for unknown indication
     Dates: start: 20241030, end: 20250215
  9. PROGESTERONE [Concomitant]
     Active Substance: PROGESTERONE
     Indication: Product used for unknown indication

REACTIONS (8)
  - Asthma [Recovered/Resolved]
  - Influenza [Recovered/Resolved]
  - Caesarean section [Recovered/Resolved]
  - Foetal death [Unknown]
  - Haemorrhage [Unknown]
  - Abdominal pain lower [Unknown]
  - Urinary tract infection [Unknown]
  - Maternal exposure during pregnancy [Unknown]

NARRATIVE: CASE EVENT DATE: 20250101
